FAERS Safety Report 7352893-6 (Version None)
Quarter: 2011Q1

REPORT INFORMATION
  Report Type: 
  Country: None (occurrence: None)
  Receive Date: 20110315
  Receipt Date: 20110228
  Transmission Date: 20110831
  Serious: Yes (Hospitalization, Other)
  Sender: FDA-Public Use
  Company Number: BR-ROCHE-758059

PATIENT
  Sex: Male
  Weight: 59 kg

DRUGS (2)
  1. ROACUTAN [Suspect]
     Indication: ACNE
     Route: 048
     Dates: start: 20100601, end: 20110205
  2. CITALOPRAM HYDROBROMIDE [Concomitant]

REACTIONS (10)
  - BLOOD PRESSURE FLUCTUATION [None]
  - VOMITING [None]
  - WHITE BLOOD CELL COUNT ABNORMAL [None]
  - OBSESSIVE-COMPULSIVE DISORDER [None]
  - AGORAPHOBIA [None]
  - CONVULSION [None]
  - LIVER DISORDER [None]
  - PANIC DISORDER [None]
  - DISTURBANCE IN ATTENTION [None]
  - HEADACHE [None]
